FAERS Safety Report 4528970-1 (Version None)
Quarter: 2004Q4

REPORT INFORMATION
  Report Type: 
  Country: None (occurrence: None)
  Receive Date: 20041215
  Receipt Date: 20041215
  Transmission Date: 20050328
  Serious: Yes (Death)
  Sender: FDA-Public Use
  Company Number: None

PATIENT
  Age: 74 Year
  Sex: Male
  Weight: 83.9154 kg

DRUGS (3)
  1. SINEMET [Suspect]
     Indication: PARKINSON'S DISEASE
     Dosage: 25/100MG  4X/DAY
     Dates: start: 20040610, end: 20040722
  2. VICODIN [Suspect]
     Indication: SPINAL DISORDER
     Dosage: AS NEEDED
     Dates: start: 20040706, end: 20040722
  3. VICODIN [Suspect]
     Indication: SURGERY
     Dosage: AS NEEDED
     Dates: start: 20040706, end: 20040722

REACTIONS (4)
  - COMPLETED SUICIDE [None]
  - DEPRESSION POSTOPERATIVE [None]
  - GUN SHOT WOUND [None]
  - SURGERY [None]
